FAERS Safety Report 24883101 (Version 1)
Quarter: 2025Q1

REPORT INFORMATION
  Report Type: Spontaneous
  Country: CN (occurrence: CN)
  Receive Date: 20250124
  Receipt Date: 20250124
  Transmission Date: 20250409
  Serious: Yes (Other)
  Sender: BAXTER
  Company Number: None

PATIENT
  Age: 36 Year
  Sex: Female
  Weight: 52 kg

DRUGS (29)
  1. CYCLOPHOSPHAMIDE [Suspect]
     Active Substance: CYCLOPHOSPHAMIDE
     Indication: Invasive breast carcinoma
     Route: 041
     Dates: start: 20250108, end: 20250108
  2. CYCLOPHOSPHAMIDE [Suspect]
     Active Substance: CYCLOPHOSPHAMIDE
     Indication: Metastases to lymph nodes
  3. CYCLOPHOSPHAMIDE [Suspect]
     Active Substance: CYCLOPHOSPHAMIDE
     Indication: Breast cancer stage III
  4. EPIRUBICIN [Suspect]
     Active Substance: EPIRUBICIN
     Indication: Invasive breast carcinoma
     Route: 041
     Dates: start: 20250108, end: 20250108
  5. EPIRUBICIN [Suspect]
     Active Substance: EPIRUBICIN
     Indication: Metastases to lymph nodes
  6. EPIRUBICIN [Suspect]
     Active Substance: EPIRUBICIN
     Indication: Breast cancer stage III
  7. SODIUM CHLORIDE [Suspect]
     Active Substance: SODIUM CHLORIDE
     Indication: Invasive breast carcinoma
     Route: 041
     Dates: start: 20250108, end: 20250108
  8. SODIUM CHLORIDE [Suspect]
     Active Substance: SODIUM CHLORIDE
     Indication: Metastases to lymph nodes
     Route: 041
     Dates: start: 20250108, end: 20250108
  9. SODIUM CHLORIDE [Suspect]
     Active Substance: SODIUM CHLORIDE
     Indication: Breast cancer stage III
     Route: 042
     Dates: start: 20250108
  10. SODIUM CHLORIDE [Suspect]
     Active Substance: SODIUM CHLORIDE
     Indication: Medication dilution
     Route: 042
     Dates: start: 20250108
  11. SODIUM CHLORIDE [Suspect]
     Active Substance: SODIUM CHLORIDE
     Route: 042
     Dates: start: 20250108
  12. SODIUM CHLORIDE [Suspect]
     Active Substance: SODIUM CHLORIDE
     Route: 042
     Dates: start: 20250109
  13. SODIUM CHLORIDE [Suspect]
     Active Substance: SODIUM CHLORIDE
     Route: 042
     Dates: start: 20250109
  14. SODIUM CHLORIDE [Suspect]
     Active Substance: SODIUM CHLORIDE
     Route: 042
     Dates: start: 20250110
  15. SODIUM CHLORIDE [Suspect]
     Active Substance: SODIUM CHLORIDE
     Route: 042
     Dates: start: 20250110
  16. TROPISETRON [Suspect]
     Active Substance: TROPISETRON
     Indication: Antiemetic supportive care
     Route: 042
     Dates: start: 20250108
  17. TROPISETRON [Suspect]
     Active Substance: TROPISETRON
     Route: 042
     Dates: start: 20250108
  18. TROPISETRON [Suspect]
     Active Substance: TROPISETRON
     Route: 042
     Dates: start: 20250109
  19. TROPISETRON [Suspect]
     Active Substance: TROPISETRON
     Route: 042
     Dates: start: 20250110
  20. DEXAMETHASONE [Suspect]
     Active Substance: DEXAMETHASONE
     Route: 042
     Dates: start: 20250108
  21. OMEPRAZOLE SODIUM [Suspect]
     Active Substance: OMEPRAZOLE SODIUM
     Route: 065
     Dates: start: 20250108
  22. OMEPRAZOLE SODIUM [Suspect]
     Active Substance: OMEPRAZOLE SODIUM
     Route: 065
     Dates: start: 20250109
  23. OMEPRAZOLE SODIUM [Suspect]
     Active Substance: OMEPRAZOLE SODIUM
     Route: 065
     Dates: start: 20250110
  24. VITAMIN C [Suspect]
     Active Substance: ASCORBIC ACID
     Indication: Fluid replacement
     Route: 041
     Dates: start: 20250109
  25. VITAMIN C [Suspect]
     Active Substance: ASCORBIC ACID
     Route: 041
     Dates: start: 20250110
  26. VITAMIN B6 [Suspect]
     Active Substance: PYRIDOXINE HYDROCHLORIDE
     Indication: Fluid replacement
     Route: 041
     Dates: start: 20250109
  27. VITAMIN B6 [Suspect]
     Active Substance: PYRIDOXINE HYDROCHLORIDE
     Route: 041
     Dates: start: 20250110
  28. DEXTROSE [Suspect]
     Active Substance: DEXTROSE MONOHYDRATE
     Indication: Fluid replacement
     Route: 041
     Dates: start: 20250109
  29. DEXTROSE [Suspect]
     Active Substance: DEXTROSE MONOHYDRATE
     Route: 041
     Dates: start: 20250110

REACTIONS (8)
  - Hypocalcaemia [Recovering/Resolving]
  - Discomfort [Recovering/Resolving]
  - Initial insomnia [Recovering/Resolving]
  - Red blood cell count decreased [Recovering/Resolving]
  - Nausea [Recovering/Resolving]
  - Vomiting [Recovering/Resolving]
  - Decreased appetite [Recovering/Resolving]
  - Haemoglobin decreased [Recovering/Resolving]

NARRATIVE: CASE EVENT DATE: 20250108
